FAERS Safety Report 5881557-0 (Version None)
Quarter: 2008Q3

REPORT INFORMATION
  Report Type: 
  Country: None (occurrence: None)
  Receive Date: 20080912
  Receipt Date: 20080701
  Transmission Date: 20090109
  Serious: Yes (Hospitalization)
  Sender: FDA-Public Use
  Company Number: US-ABBOTT-08P-163-0460632-00

PATIENT
  Sex: Female
  Weight: 74.456 kg

DRUGS (5)
  1. HUMIRA [Suspect]
     Indication: RHEUMATOID ARTHRITIS
     Route: 050
     Dates: start: 20040101
  2. LEVOTHYROXINE SODIUM [Concomitant]
     Indication: THYROIDECTOMY
     Dosage: DAILY
     Route: 048
     Dates: start: 19690101
  3. EYE DROP [Concomitant]
     Indication: GLAUCOMA
     Dosage: EVERY NIGHT, EACH EYE
     Dates: start: 19680101
  4. LOSARTAN POTASSIUM [Concomitant]
     Indication: BLOOD PRESSURE
     Dosage: 100 MG EVERY AM, 25 MG EVERY NIGHT
     Route: 048
  5. SIMVASTATIN [Concomitant]
     Indication: BLOOD CHOLESTEROL INCREASED
     Route: 048

REACTIONS (4)
  - CYSTITIS [None]
  - HEADACHE [None]
  - HOT FLUSH [None]
  - KNEE ARTHROPLASTY [None]
